FAERS Safety Report 12730436 (Version 1)
Quarter: 2016Q3

REPORT INFORMATION
  Report Type: Spontaneous
  Country: US (occurrence: US)
  Receive Date: 20160909
  Receipt Date: 20160909
  Transmission Date: 20161109
  Serious: No
  Sender: FDA-Public Use
  Company Number: US-ALLERGAN-1652853US

PATIENT
  Age: 81 Year
  Sex: Male

DRUGS (1)
  1. FIORINAL WITH CODEINE [Suspect]
     Active Substance: ASPIRIN\BUTALBITAL\CAFFEINE\CODEINE PHOSPHATE
     Indication: HEADACHE
     Dosage: 1-3, QD
     Route: 048
     Dates: start: 1966

REACTIONS (3)
  - Product physical issue [Unknown]
  - Oesophageal pain [Not Recovered/Not Resolved]
  - Dysgeusia [Not Recovered/Not Resolved]
